FAERS Safety Report 16346038 (Version 1)
Quarter: 2019Q2

REPORT INFORMATION
  Report Type: Spontaneous
  Country: DE (occurrence: DE)
  Receive Date: 20190523
  Receipt Date: 20190523
  Transmission Date: 20190711
  Serious: Yes (Other)
  Sender: FDA-Public Use
  Company Number: DE-UCBSA-2019020818

PATIENT
  Age: 26 Year
  Sex: Male

DRUGS (1)
  1. BRIVIACT [Suspect]
     Active Substance: BRIVARACETAM
     Indication: EPILEPSY
     Dosage: UNK
     Dates: start: 201902

REACTIONS (6)
  - Vomiting [Unknown]
  - Drug hypersensitivity [None]
  - Acute kidney injury [Unknown]
  - Hypertension [Unknown]
  - Seizure [Unknown]
  - Nausea [Unknown]

NARRATIVE: CASE EVENT DATE: 201905
